FAERS Safety Report 5799776-0 (Version None)
Quarter: 2008Q3

REPORT INFORMATION
  Report Type: 
  Country: None (occurrence: None)
  Receive Date: 20080703
  Receipt Date: 20080702
  Transmission Date: 20090109
  Serious: Yes (Hospitalization, Other)
  Sender: FDA-Public Use
  Company Number: US-ABBOTT-08P-163-0456087-00

PATIENT
  Sex: Female
  Weight: 45.4 kg

DRUGS (1)
  1. HUMIRA [Suspect]
     Indication: RHEUMATOID ARTHRITIS
     Route: 058
     Dates: start: 20070504

REACTIONS (4)
  - CEREBROVASCULAR ACCIDENT [None]
  - DYSSTASIA [None]
  - FALL [None]
  - FEELING ABNORMAL [None]
